FAERS Safety Report 16040963 (Version 1)
Quarter: 2019Q1

REPORT INFORMATION
  Report Type: Spontaneous
  Country: CN (occurrence: CN)
  Receive Date: 20190306
  Receipt Date: 20190306
  Transmission Date: 20190418
  Serious: Yes (Hospitalization, Other)
  Sender: FDA-Public Use
  Company Number: CN-MACLEODS PHARMACEUTICALS US LTD-MAC2019020329

PATIENT

DRUGS (1)
  1. VALSARTAN 40 MG [Suspect]
     Active Substance: VALSARTAN
     Indication: HYPERTENSION
     Dosage: 40 MILLIGRAM, QD, DISPERSIBLE TABLETS
     Route: 048

REACTIONS (4)
  - Tubulointerstitial nephritis [Recovered/Resolved]
  - Anaemia [Unknown]
  - Hypersensitivity [Recovered/Resolved]
  - Renal failure [Recovered/Resolved]
